FAERS Safety Report 17166051 (Version 2)
Quarter: 2020Q3

REPORT INFORMATION
  Report Type: Spontaneous
  Country: US (occurrence: US)
  Receive Date: 20191217
  Receipt Date: 20200917
  Transmission Date: 20201102
  Serious: No
  Sender: FDA-Public Use
  Company Number: US-SA-2019SA343454

PATIENT

DRUGS (3)
  1. EUCRISA [Concomitant]
     Active Substance: CRISABOROLE
     Indication: RASH
     Dosage: UNK
  2. DUPIXENT [Suspect]
     Active Substance: DUPILUMAB
     Indication: DERMATITIS ATOPIC
     Dosage: 300 MG, QOW
     Route: 058
     Dates: start: 20200723
  3. DUPIXENT [Suspect]
     Active Substance: DUPILUMAB
     Indication: DERMATITIS
     Dosage: 300 MG, QOW
     Route: 058
     Dates: start: 20190827

REACTIONS (3)
  - Rash [Unknown]
  - Erythema [Unknown]
  - Dermatitis [Unknown]

NARRATIVE: CASE EVENT DATE: 2020
